FAERS Safety Report 8760956 (Version 1)
Quarter: 2012Q4

REPORT INFORMATION
  Report Type: 
  Country: EG (occurrence: EG)
  Receive Date: 20120830
  Receipt Date: 20120830
  Transmission Date: 20130627
  Serious: Yes (Death, Other)
  Sender: FDA-Public Use
  Company Number: EG-SANOFI-AVENTIS-2012SA061397

PATIENT
  Age: 76 Year
  Sex: Male

DRUGS (1)
  1. CABAZITAXEL [Suspect]
     Indication: PROSTATE CANCER
     Route: 065

REACTIONS (2)
  - Hypokalaemia [Fatal]
  - Neutropenia [Unknown]
